FAERS Safety Report 14551285 (Version 1)
Quarter: 2018Q1

REPORT INFORMATION
  Report Type: Spontaneous
  Country: US (occurrence: US)
  Receive Date: 20180220
  Receipt Date: 20180220
  Transmission Date: 20180509
  Serious: No
  Sender: FDA-Public Use
  Company Number: US-TEVA-777689ACC

PATIENT
  Sex: Female

DRUGS (1)
  1. TAMOXIFEN CITRATE. [Suspect]
     Active Substance: TAMOXIFEN CITRATE

REACTIONS (2)
  - Seborrhoeic keratosis [Unknown]
  - Adverse drug reaction [Unknown]
